FAERS Safety Report 4989780-4 (Version None)
Quarter: 2006Q2

REPORT INFORMATION
  Report Type: 
  Country: None (occurrence: None)
  Receive Date: 20060428
  Receipt Date: 20060419
  Transmission Date: 20061013
  Serious: Yes (Life-Threatening)
  Sender: FDA-Public Use
  Company Number: 2006047876

PATIENT
  Age: 69 Year
  Sex: Male

DRUGS (2)
  1. VFEND [Suspect]
     Indication: ILL-DEFINED DISORDER
     Dosage: 400 MG (1 IN 1 D) ORAL
     Route: 048
  2. AMIODARONE HYDROCHLORIDE [Suspect]
     Indication: ILL-DEFINED DISORDER
     Dosage: ORAL
     Route: 048

REACTIONS (5)
  - DIARRHOEA [None]
  - DRUG INTERACTION [None]
  - ELECTROCARDIOGRAM QT PROLONGED [None]
  - HYPOKALAEMIA [None]
  - TORSADE DE POINTES [None]
